FAERS Safety Report 6387269-1 (Version None)
Quarter: 2009Q4

REPORT INFORMATION
  Report Type: 
  Country: None (occurrence: None)
  Receive Date: 20091002
  Receipt Date: 20090923
  Transmission Date: 20100525
  Serious: Yes (Other)
  Sender: FDA-Public Use
  Company Number: DE-AMGEN-US365256

PATIENT
  Age: 51 Year
  Sex: Male

DRUGS (3)
  1. ENBREL [Suspect]
     Indication: PSORIASIS
     Route: 058
     Dates: start: 20070601
  2. ADALIMUMAB [Suspect]
     Indication: PSORIASIS
     Route: 058
     Dates: start: 20070201
  3. INFLIXIMAB [Suspect]
     Indication: PSORIASIS
     Dosage: 5 MG/KG BODY WEIGHT IN WEES 0, 2, 6 AND 14
     Route: 042
     Dates: start: 20051001

REACTIONS (1)
  - MALIGNANT MELANOMA STAGE I [None]
